FAERS Safety Report 6190605-2 (Version None)
Quarter: 2009Q2

REPORT INFORMATION
  Report Type: 
  Country: None (occurrence: None)
  Receive Date: 20090514
  Receipt Date: 20090309
  Transmission Date: 20091009
  Serious: Yes (Hospitalization)
  Sender: FDA-Public Use
  Company Number: US-BRISTOL-MYERS SQUIBB COMPANY-14536718

PATIENT
  Sex: Female

DRUGS (5)
  1. IXEMPRA KIT [Suspect]
     Indication: BREAST CANCER METASTATIC
     Dates: start: 20090101, end: 20090101
  2. TAXOL [Concomitant]
  3. GEMCITABINE [Concomitant]
  4. AVASTIN [Concomitant]
  5. CAPECITABINE [Concomitant]

REACTIONS (1)
  - ADVERSE DRUG REACTION [None]
